FAERS Safety Report 4693880-6 (Version None)
Quarter: 2005Q2

REPORT INFORMATION
  Report Type: 
  Country: None (occurrence: None)
  Receive Date: 20050616
  Receipt Date: 20050608
  Transmission Date: 20051028
  Serious: Yes (Hospitalization)
  Sender: FDA-Public Use
  Company Number: 2005087005

PATIENT
  Age: 79 Year
  Sex: Male

DRUGS (2)
  1. NEURONTIN [Suspect]
     Indication: NEURALGIA
     Dosage: 1200 MG (600 MG, 2 IN 1 D)
     Dates: start: 20050301
  2. CLONAZEPAM [Suspect]
     Indication: EPILEPSY
     Dosage: 15 DROP
     Dates: start: 20050501

REACTIONS (5)
  - EPILEPSY [None]
  - SEPSIS [None]
  - SKIN INFECTION [None]
  - SKIN ULCER [None]
  - SOMNOLENCE [None]
